FAERS Safety Report 22116982 (Version 1)
Quarter: 2023Q1

REPORT INFORMATION
  Report Type: Spontaneous
  Country: US (occurrence: US)
  Receive Date: 20230320
  Receipt Date: 20230320
  Transmission Date: 20230418
  Serious: Yes (Other)
  Sender: FDA-Public Use
  Company Number: US-JUBILANT CADISTA PHARMACEUTICALS-2023JUB00122

PATIENT
  Age: 69 Year
  Sex: Female

DRUGS (3)
  1. MYCOPHENOLATE MOFETIL [Suspect]
     Active Substance: MYCOPHENOLATE MOFETIL
     Indication: Immunosuppression
     Route: 048
  2. PREDNISONE [Suspect]
     Active Substance: PREDNISONE
     Indication: Immunosuppression
     Route: 048
  3. TACROLIMUS [Concomitant]
     Active Substance: TACROLIMUS
     Indication: Immunosuppression
     Route: 048

REACTIONS (2)
  - Conjunctival defect [Recovered/Resolved]
  - Nocardiosis [Recovered/Resolved]
